FAERS Safety Report 6540244-6 (Version None)
Quarter: 2010Q1

REPORT INFORMATION
  Report Type: 
  Country: None (occurrence: None)
  Receive Date: 20100115
  Receipt Date: 20100106
  Transmission Date: 20100710
  Serious: Yes (Hospitalization)
  Sender: FDA-Public Use
  Company Number: FR-ASTRAZENECA-2010SE00454

PATIENT
  Age: 28914 Day
  Sex: Male

DRUGS (4)
  1. ZOLADEX [Suspect]
     Indication: PROSTATE CANCER
     Dosage: EVERY THREE MONTHS
     Route: 058
  2. ANDROCUR [Concomitant]
     Indication: PROSTATE CANCER
     Route: 048
  3. PREVISCAN [Concomitant]
     Route: 048
  4. DILTIAZEM [Concomitant]
     Route: 048

REACTIONS (2)
  - OSTEOPOROSIS [None]
  - SPINAL FRACTURE [None]
